FAERS Safety Report 7717930-5 (Version None)
Quarter: 2011Q3

REPORT INFORMATION
  Report Type: 
  Country: None (occurrence: None)
  Receive Date: 20110830
  Receipt Date: 20110820
  Transmission Date: 20111222
  Serious: Yes (Other)
  Sender: FDA-Public Use
  Company Number: US-JNJFOC-20110410280

PATIENT
  Age: 45 Year
  Sex: Female

DRUGS (6)
  1. RISPERDAL CONSTA [Suspect]
     Indication: SCHIZOPHRENIA
     Route: 030
     Dates: start: 20110101, end: 20110301
  2. INVEGA SUSTENNA [Suspect]
     Indication: SCHIZOPHRENIA
     Route: 030
     Dates: start: 20110322, end: 20110322
  3. RISPERDAL [Suspect]
     Route: 048
  4. LEXAPRO [Concomitant]
     Route: 065
  5. RISPERDAL [Suspect]
     Indication: SCHIZOPHRENIA
     Route: 048
  6. RISPERDAL CONSTA [Suspect]
     Route: 030
     Dates: start: 20110401

REACTIONS (1)
  - CONVULSION [None]
